FAERS Safety Report 7415258-4 (Version None)
Quarter: 2011Q2

REPORT INFORMATION
  Report Type: 
  Country: None (occurrence: None)
  Receive Date: 20110414
  Receipt Date: 20110412
  Transmission Date: 20111010
  Serious: Yes (Death, Hospitalization)
  Sender: FDA-Public Use
  Company Number: PHHY2010MX48060

PATIENT
  Age: 88 Year
  Sex: Female

DRUGS (1)
  1. RASILEZ [Suspect]
     Indication: HYPERTENSION
     Dosage: 1 DF, QD
     Dates: start: 20090601, end: 20100621

REACTIONS (6)
  - VOMITING [None]
  - DEHYDRATION [None]
  - DIVERTICULUM [None]
  - CARDIAC ARREST [None]
  - DIARRHOEA [None]
  - NAUSEA [None]
